FAERS Safety Report 13657998 (Version 2)
Quarter: 2017Q2

REPORT INFORMATION
  Report Type: Spontaneous
  Country: GB (occurrence: GB)
  Receive Date: 20170616
  Receipt Date: 20170623
  Transmission Date: 20170830
  Serious: Yes (Other)
  Sender: FDA-Public Use
  Company Number: GB-BAXTER-2017BAX023522

PATIENT
  Age: 52 Year
  Sex: Male

DRUGS (13)
  1. RITUXIMAB [Suspect]
     Active Substance: RITUXIMAB
     Indication: MANTLE CELL LYMPHOMA STAGE IV
     Dosage: DOSAGE FORM: UNSPECIFIED, 6 CYCLES OF R-CHOP
     Route: 065
  2. MELPHALAN. [Suspect]
     Active Substance: MELPHALAN
     Indication: MANTLE CELL LYMPHOMA STAGE IV
     Dosage: BEAM AUTOGRAFT
     Route: 065
     Dates: start: 201304
  3. CYTARABINE. [Suspect]
     Active Substance: CYTARABINE
     Dosage: DOSAGE FORM: UNSPECIFIED, HIGH DOSE OF CYTARABINE, BEAM
     Route: 065
     Dates: start: 201304
  4. ETOPOSIDE. [Suspect]
     Active Substance: ETOPOSIDE
     Dosage: BEAM
     Route: 065
     Dates: start: 201304
  5. SOLU-MEDROL [Suspect]
     Active Substance: METHYLPREDNISOLONE SODIUM SUCCINATE
     Indication: MANTLE CELL LYMPHOMA STAGE IV
     Dosage: DOSAGE FORM: UNSPECIFIED, 3 CYCLES OF ESHAP
     Route: 065
  6. CYTARABINE. [Suspect]
     Active Substance: CYTARABINE
     Indication: MANTLE CELL LYMPHOMA STAGE IV
     Dosage: DOSAGE FORM: UNSPECIFIED, 3 CYCLES OF ESHAP
     Route: 065
  7. CAELYX [Suspect]
     Active Substance: DOXORUBICIN HYDROCHLORIDE
     Indication: MANTLE CELL LYMPHOMA STAGE IV
     Dosage: DOSAGE FORM: LIPOSOME INJECTION, 6 CYCLES OF R-CHOP
     Route: 065
  8. ETOPOSIDE. [Suspect]
     Active Substance: ETOPOSIDE
     Indication: MANTLE CELL LYMPHOMA STAGE IV
     Dosage: DOSAGE FORM: UNSPECIFIED, 3 CYCLES OF ESHAP
     Route: 065
  9. CYCLOPHOSPHAMIDE INJECTION 1G [Suspect]
     Active Substance: CYCLOPHOSPHAMIDE
     Indication: MANTLE CELL LYMPHOMA STAGE IV
     Dosage: DOSAGE FORM: UNSPECIFIED, 6 CYCLES OF R-CHOP
     Route: 065
  10. CISPLATIN. [Suspect]
     Active Substance: CISPLATIN
     Indication: MANTLE CELL LYMPHOMA STAGE IV
     Dosage: DOSAGE FORM: UNSPECIFIED, 3 CYCLES OF ESHAP
     Route: 065
  11. PREDNISOLONE. [Suspect]
     Active Substance: PREDNISOLONE
     Indication: MANTLE CELL LYMPHOMA STAGE IV
     Dosage: DOSAGE FORM: UNSPECIFIED, 6 CYCLES OF R-CHOP
     Route: 065
  12. VINCRISTINE [Suspect]
     Active Substance: VINCRISTINE
     Indication: MANTLE CELL LYMPHOMA STAGE IV
     Dosage: DOSAGE FORM: UNSPECIFIED, 6 CYCLES OF R-CHOP
     Route: 065
  13. CARMUSTINE [Suspect]
     Active Substance: CARMUSTINE
     Indication: MANTLE CELL LYMPHOMA STAGE IV
     Dosage: BEAM AUTOGRAFT
     Route: 065
     Dates: start: 201304

REACTIONS (3)
  - Abdominal pain [Recovering/Resolving]
  - Pulmonary embolism [Unknown]
  - Mantle cell lymphoma recurrent [Unknown]
